FAERS Safety Report 11353949 (Version 1)
Quarter: 2015Q3

REPORT INFORMATION
  Report Type: Spontaneous
  Country: US (occurrence: US)
  Receive Date: 20150807
  Receipt Date: 20150807
  Transmission Date: 20151125
  Serious: No
  Sender: FDA-Public Use
  Company Number: US-JNJFOC-20150602100

PATIENT
  Age: 55 Year
  Sex: Female
  Weight: 60.78 kg

DRUGS (2)
  1. SUDAFED CONGESTION MS [Suspect]
     Active Substance: PSEUDOEPHEDRINE HYDROCHLORIDE
     Indication: SINUS DISORDER
     Route: 048
  2. LORAZEPAM. [Concomitant]
     Active Substance: LORAZEPAM
     Indication: ANXIETY
     Dosage: 1/2 WHEN NEEDED
     Route: 065

REACTIONS (3)
  - Expired product administered [Unknown]
  - Product packaging issue [Unknown]
  - Drug effect decreased [Unknown]
